FAERS Safety Report 17172786 (Version 1)
Quarter: 2019Q4

REPORT INFORMATION
  Report Type: Spontaneous
  Country: US (occurrence: US)
  Receive Date: 20191218
  Receipt Date: 20191218
  Transmission Date: 20200122
  Serious: No
  Sender: FDA-Public Use
  Company Number: NVSC2019US015903

PATIENT
  Sex: Female

DRUGS (2)
  1. COSENTYX [Suspect]
     Active Substance: SECUKINUMAB
     Indication: DERMATITIS ATOPIC
     Dosage: 150 MG, QW (LOADING DOSE)
     Route: 058
     Dates: start: 20190918
  2. COSENTYX [Suspect]
     Active Substance: SECUKINUMAB
     Indication: PSORIASIS
     Dosage: 150 MG, QW (LOADING DOSE)
     Route: 058
     Dates: start: 20191002

REACTIONS (1)
  - Product selection error [Recovered/Resolved]
